FAERS Safety Report 9350660 (Version 2)
Quarter: 2013Q3

REPORT INFORMATION
  Report Type: Spontaneous
  Country: CA (occurrence: CA)
  Receive Date: 20130617
  Receipt Date: 20130708
  Transmission Date: 20140515
  Serious: Yes (Other)
  Sender: FDA-Public Use
  Company Number: CA-GENZYME-LEUP-1000010

PATIENT
  Age: 9 Year
  Sex: Female
  Weight: 45.5 kg

DRUGS (1)
  1. LEUPROLIDE ACETATE [Suspect]
     Indication: PRECOCIOUS PUBERTY
     Dosage: 7.5 MG, Q3W
     Route: 030
     Dates: start: 200112, end: 20120628

REACTIONS (1)
  - Epiphysiolysis [Recovered/Resolved with Sequelae]
